FAERS Safety Report 5578150-6 (Version None)
Quarter: 2007Q4

REPORT INFORMATION
  Report Type: 
  Country: None (occurrence: None)
  Receive Date: 20071231
  Receipt Date: 20071220
  Transmission Date: 20080405
  Serious: Yes (Death, Life-Threatening, Hospitalization, Other)
  Sender: FDA-Public Use
  Company Number: FI-PFIZER INC-2004086396

PATIENT
  Age: 76 Year
  Sex: Male

DRUGS (10)
  1. LIPITOR [Suspect]
     Indication: HYPERCHOLESTEROLAEMIA
     Dosage: DAILY DOSE:40MG
     Route: 048
     Dates: start: 20040507, end: 20040523
  2. DIFLUCAN [Interacting]
     Indication: PROPHYLAXIS
     Dosage: DAILY DOSE:150MG
     Route: 048
     Dates: start: 20040101, end: 20040101
  3. BISOPROLOL [Concomitant]
     Route: 048
  4. NEXIUM [Concomitant]
     Route: 048
  5. WARFARIN SODIUM [Concomitant]
     Route: 048
  6. DOXIMYCIN [Concomitant]
     Route: 048
  7. PREDNISOLONE [Concomitant]
     Route: 048
  8. FUCIDINE CAP [Concomitant]
     Route: 048
  9. DIGOXIN [Concomitant]
     Route: 048
  10. TAVANIC [Concomitant]
     Route: 048

REACTIONS (14)
  - BLOOD PRESSURE ABNORMAL [None]
  - CARDIAC FAILURE [None]
  - CARDIOMEGALY [None]
  - CEREBRAL DISORDER [None]
  - COAGULOPATHY [None]
  - DRUG INTERACTION [None]
  - HYPOTONIA [None]
  - MULTI-ORGAN FAILURE [None]
  - MYOCARDIAL INFARCTION [None]
  - MYOPATHY [None]
  - PULMONARY CONGESTION [None]
  - RENAL FAILURE [None]
  - RHABDOMYOLYSIS [None]
  - TACHYCARDIA [None]
